FAERS Safety Report 8543981-7 (Version None)
Quarter: 2012Q3

REPORT INFORMATION
  Report Type: 
  Country: None (occurrence: None)
  Receive Date: 20120717
  Receipt Date: 20120629
  Transmission Date: 20120928
  Serious: Yes (Hospitalization)
  Sender: FDA-Public Use
  Company Number: JPI-P-022378

PATIENT
  Sex: Male

DRUGS (4)
  1. XYREM [Suspect]
     Indication: INSOMNIA
     Dosage: 6;7.5;9 GM (3 GM, 2 I N1 D), ORAL
     Route: 048
     Dates: start: 20111108, end: 20120501
  2. XYREM [Suspect]
     Indication: INSOMNIA
     Dosage: 6;7.5;9 GM (3 GM, 2 I N1 D), ORAL
     Route: 048
     Dates: start: 20120601
  3. XYREM [Suspect]
     Indication: INSOMNIA
     Dosage: 6;7.5;9 GM (3 GM, 2 I N1 D), ORAL
     Route: 048
     Dates: start: 20110824, end: 20110915
  4. XYREM [Suspect]
     Indication: INSOMNIA
     Dosage: 6;7.5;9 GM (3 GM, 2 I N1 D), ORAL
     Route: 048
     Dates: start: 20110916, end: 20111107

REACTIONS (8)
  - FALL [None]
  - PULMONARY EMBOLISM [None]
  - PNEUMONIA [None]
  - AGITATION [None]
  - ENURESIS [None]
  - ACCIDENT [None]
  - HAEMOPTYSIS [None]
  - SLEEP TALKING [None]
